FAERS Safety Report 8951617 (Version 1)
Quarter: 2012Q4

REPORT INFORMATION
  Report Type: 
  Country: CA (occurrence: CA)
  Receive Date: 20121204
  Receipt Date: 20121204
  Transmission Date: 20130627
  Serious: Yes (Hospitalization)
  Sender: FDA-Public Use
  Company Number: CA-ROCHE-1164070

PATIENT
  Sex: Male

DRUGS (1)
  1. LUCENTIS [Suspect]
     Indication: DIABETIC RETINAL OEDEMA
     Route: 050

REACTIONS (2)
  - General physical health deterioration [Unknown]
  - Pulmonary oedema [Unknown]
